FAERS Safety Report 24092956 (Version 2)
Quarter: 2024Q3

REPORT INFORMATION
  Report Type: Spontaneous
  Country: US (occurrence: US)
  Receive Date: 20240715
  Receipt Date: 20240802
  Transmission Date: 20241017
  Serious: Yes (Other)
  Sender: ABBVIE
  Company Number: US-ABBVIE-5835303

PATIENT
  Sex: Female

DRUGS (1)
  1. OZURDEX [Suspect]
     Active Substance: DEXAMETHASONE
     Indication: Uveitis
     Dosage: FORM STRENGTH: 0.7 MG?LAST OZURDEX IN LEFT EYE?INTRAVITREAL IMPLANT
     Route: 050
     Dates: start: 20240618, end: 20240709

REACTIONS (3)
  - Retinal detachment [Unknown]
  - Unevaluable event [Unknown]
  - Photopsia [Unknown]

NARRATIVE: CASE EVENT DATE: 20240101
